FAERS Safety Report 6979394-9 (Version None)
Quarter: 2010Q3

REPORT INFORMATION
  Report Type: 
  Country: None (occurrence: None)
  Receive Date: 20100913
  Receipt Date: 20100907
  Transmission Date: 20110219
  Serious: Yes (Death)
  Sender: FDA-Public Use
  Company Number: US-JNJCH-2006141165

PATIENT
  Age: 50 Year

DRUGS (3)
  1. DIPHENHYDRAMINE HCL [Suspect]
     Indication: SUICIDE ATTEMPT
     Dosage: TEXT:UNSPECIFIED
     Route: 048
  2. CARBAMAZEPINE [Suspect]
     Indication: SUICIDE ATTEMPT
     Dosage: TEXT:UNSPECIFIED
     Route: 048
  3. ACETAMINOPHEN AND HYDROCODONE BITARTRATE [Suspect]
     Indication: SUICIDE ATTEMPT
     Dosage: TEXT:UNSPECIFIED
     Route: 048

REACTIONS (1)
  - COMPLETED SUICIDE [None]
